FAERS Safety Report 22191281 (Version 1)
Quarter: 2023Q2

REPORT INFORMATION
  Report Type: Spontaneous
  Country: CN (occurrence: CN)
  Receive Date: 20230410
  Receipt Date: 20230410
  Transmission Date: 20230721
  Serious: Yes (Hospitalization)
  Sender: FDA-Public Use
  Company Number: CN-BAYER-2023A042016

PATIENT
  Age: 88 Year
  Sex: Male
  Weight: 65 kg

DRUGS (1)
  1. CIPROFLOXACIN [Suspect]
     Active Substance: CIPROFLOXACIN
     Indication: Endophthalmitis
     Dosage: 0.4 G, BID
     Route: 041
     Dates: start: 20230315, end: 20230315

REACTIONS (4)
  - Blood pressure increased [Recovered/Resolved]
  - Flushing [Recovered/Resolved]
  - Dry mouth [None]
  - Off label use [None]

NARRATIVE: CASE EVENT DATE: 20230315
